FAERS Safety Report 4283675-X (Version None)
Quarter: 2004Q1

REPORT INFORMATION
  Report Type: 
  Country: None (occurrence: None)
  Receive Date: 20040202
  Receipt Date: 20040105
  Transmission Date: 20041129
  Serious: Yes (Other)
  Sender: FDA-Public Use
  Company Number: PHEH2004US00508

PATIENT
  Age: 83 Year
  Sex: Male
  Weight: 86 kg

DRUGS (9)
  1. GLEEVEC [Suspect]
     Indication: CHRONIC MYELOID LEUKAEMIA
     Dosage: 400 MG, QD
     Route: 048
     Dates: start: 20020901, end: 20030101
  2. COUMADIN [Concomitant]
  3. HYDROCHLOROTHIAZIDE [Concomitant]
  4. LOSARTAN [Concomitant]
  5. VIOXX                                   /USA/ [Concomitant]
  6. TERAZOSIN HCL [Concomitant]
  7. MULTIVITAMIN [Concomitant]
  8. LORAZEPAM [Concomitant]
  9. TIMOLOL MALEATE [Concomitant]

REACTIONS (10)
  - AMNESIA [None]
  - ANOREXIA [None]
  - FATIGUE [None]
  - MUCOSAL INFLAMMATION [None]
  - NEUROTOXICITY [None]
  - RASH [None]
  - RASH MACULAR [None]
  - SOMNOLENCE [None]
  - VASCULITIS [None]
  - WEIGHT DECREASED [None]
